FAERS Safety Report 12483954 (Version 1)
Quarter: 2016Q2

REPORT INFORMATION
  Report Type: Spontaneous
  Country: None (occurrence: None)
  Receive Date: 20160620
  Receipt Date: 20160620
  Transmission Date: 20160815
  Serious: Yes (Life-Threatening)
  Sender: FDA-Public Use
  Company Number: None

PATIENT
  Age: 77 Year
  Sex: Female
  Weight: 48.8 kg

DRUGS (1)
  1. RANOLAZINE SR, 500MG GILEAD [Suspect]
     Active Substance: RANOLAZINE
     Indication: ANGINA PECTORIS
     Route: 048
     Dates: start: 20160425, end: 20160615

REACTIONS (2)
  - Haemolytic anaemia [None]
  - Pancytopenia [None]

NARRATIVE: CASE EVENT DATE: 20160615
